FAERS Safety Report 24821763 (Version 2)
Quarter: 2025Q2

REPORT INFORMATION
  Report Type: Spontaneous
  Country: US (occurrence: US)
  Receive Date: 20250108
  Receipt Date: 20250418
  Transmission Date: 20250717
  Serious: No
  Sender: SANOFI AVENTIS
  Company Number: US-SA-2025SA006237

PATIENT
  Age: 26 Year
  Sex: Female
  Weight: 72.73 kg

DRUGS (12)
  1. DUPIXENT [Suspect]
     Active Substance: DUPILUMAB
     Indication: Dermatitis atopic
     Dosage: 300 MG, QOW
     Route: 058
  2. HYDROXYZINE HYDROCHLORIDE [Concomitant]
     Active Substance: HYDROXYZINE HYDROCHLORIDE
  3. VITAMIN C [Concomitant]
     Active Substance: ASCORBIC ACID
  4. MAGNESIUM CITRATE [Concomitant]
     Active Substance: MAGNESIUM CITRATE
  5. HERBALS\WITHANIA SOMNIFERA ROOT [Concomitant]
     Active Substance: HERBALS\WITHANIA SOMNIFERA ROOT
  6. PROBIOTICS NOS [Concomitant]
     Active Substance: PROBIOTICS NOS
  7. MEDROXYPROGESTERONE ACETATE [Concomitant]
     Active Substance: MEDROXYPROGESTERONE ACETATE
  8. ZYRTEC [Concomitant]
     Active Substance: CETIRIZINE HYDROCHLORIDE
  9. QUERCETIN COMPLEX [ASCORBIC ACID;BIOFLAVONOIDS NOS;HESPERIDIN;QUERCETI [Concomitant]
  10. MELATONIN RAPID [Concomitant]
  11. PHENAZOPYRIDINE [Concomitant]
     Active Substance: PHENAZOPYRIDINE
  12. NITROFURANTOIN [Concomitant]
     Active Substance: NITROFURANTOIN

REACTIONS (2)
  - Nasopharyngitis [Unknown]
  - Surgery [Unknown]

NARRATIVE: CASE EVENT DATE: 20250401
